FAERS Safety Report 10242014 (Version 1)
Quarter: 2014Q2

REPORT INFORMATION
  Report Type: Spontaneous
  Country: US (occurrence: US)
  Receive Date: 20140617
  Receipt Date: 20140617
  Transmission Date: 20141212
  Serious: No
  Sender: FDA-Public Use
  Company Number: US-PFIZER INC-2014164338

PATIENT
  Age: 74 Year
  Sex: Female
  Weight: 59.86 kg

DRUGS (2)
  1. NEURONTIN [Suspect]
     Indication: RESTLESS LEGS SYNDROME
     Dosage: UNK
  2. REQUIP [Suspect]
     Dosage: UNK

REACTIONS (4)
  - Depression [Unknown]
  - Crying [Unknown]
  - Rash [Unknown]
  - Arthritis [Unknown]
